FAERS Safety Report 5478941-6 (Version None)
Quarter: 2007Q4

REPORT INFORMATION
  Report Type: 
  Country: None (occurrence: None)
  Receive Date: 20071006
  Receipt Date: 20070925
  Transmission Date: 20080405
  Serious: Yes (Other)
  Sender: FDA-Public Use
  Company Number: US-PFIZER INC-2007080830

PATIENT
  Sex: Female
  Weight: 49.9 kg

DRUGS (9)
  1. LYRICA [Suspect]
     Indication: PAIN
     Dates: start: 20070101, end: 20070924
  2. MORPHINE SULFATE [Concomitant]
  3. DILAUDID [Concomitant]
     Indication: BREAKTHROUGH PAIN
  4. BENICAR [Concomitant]
     Indication: HYPERTENSION
  5. ATENOLOL [Concomitant]
  6. SYNTHROID [Concomitant]
  7. XALATAN [Concomitant]
     Route: 047
  8. ALPHAGAN [Concomitant]
     Route: 047
  9. ACETYLSALICYLIC ACID [Concomitant]

REACTIONS (4)
  - DYSPHONIA [None]
  - SCIATICA [None]
  - SWELLING FACE [None]
  - WEIGHT INCREASED [None]
